FAERS Safety Report 24632648 (Version 1)
Quarter: 2024Q4

REPORT INFORMATION
  Report Type: Spontaneous
  Country: US (occurrence: US)
  Receive Date: 20241118
  Receipt Date: 20241118
  Transmission Date: 20250114
  Serious: Yes (Other)
  Sender: GE HEALTHCARE
  Company Number: US-GE HEALTHCARE-2024CSU012987

PATIENT
  Age: 70 Year
  Sex: Female
  Weight: 65.76 kg

DRUGS (11)
  1. VIZAMYL [Suspect]
     Active Substance: FLUTEMETAMOL F-18
     Indication: Positron emission tomogram
     Dosage: 190.55 MBQ, TOTAL
     Route: 042
     Dates: start: 20241106, end: 20241106
  2. ALBUTEROL SULFATE [Concomitant]
     Active Substance: ALBUTEROL SULFATE
     Dosage: 1-2 PUFFS EVERY 6 HRS PRN
  3. ATORVASTATIN [Concomitant]
     Active Substance: ATORVASTATIN
     Dosage: 1 TAB, DAILY
  4. HYDROCHLOROTHIAZIDE [Concomitant]
     Active Substance: HYDROCHLOROTHIAZIDE
     Dosage: 1 TAB, DAILY
  5. LOSARTAN [Concomitant]
     Active Substance: LOSARTAN
     Dosage: 1 TAB, DAILY
  6. TRULICITY [Concomitant]
     Active Substance: DULAGLUTIDE
     Dosage: 1 EVERY 7 DAYS
  7. METOPROLOL [Concomitant]
     Active Substance: METOPROLOL
     Dosage: 1 TAB, DAILY
  8. SERTRALINE [Concomitant]
     Active Substance: SERTRALINE HYDROCHLORIDE
     Dosage: 1 TAB, DAILY
  9. FAMOTIDINE [Concomitant]
     Active Substance: FAMOTIDINE
     Dosage: 1 TAB, DAILY
  10. METFORMIN [Concomitant]
     Active Substance: METFORMIN HYDROCHLORIDE
     Dosage: 1 TAB, BID, MORNING AND EVENING
  11. CLONAZEPAM [Concomitant]
     Active Substance: CLONAZEPAM
     Dosage: 1 TAB, BID

REACTIONS (5)
  - Loss of consciousness [Recovered/Resolved]
  - Cough [Recovered/Resolved]
  - Back pain [Recovered/Resolved]
  - Hot flush [Recovered/Resolved]
  - Nausea [Recovered/Resolved]

NARRATIVE: CASE EVENT DATE: 20241106
